FAERS Safety Report 20821816 (Version 1)
Quarter: 2022Q2

REPORT INFORMATION
  Report Type: Spontaneous
  Country: NO (occurrence: NO)
  Receive Date: 20220512
  Receipt Date: 20220512
  Transmission Date: 20220720
  Serious: Yes (Life-Threatening, Other)
  Sender: FDA-Public Use
  Company Number: NO-PFIZER INC-202200675266

PATIENT
  Age: 37 Year
  Sex: Female

DRUGS (5)
  1. OXAZEPAM [Suspect]
     Active Substance: OXAZEPAM
     Indication: Anxiety
     Dosage: UNK
     Dates: start: 20201214, end: 20210201
  2. OXAZEPAM [Suspect]
     Active Substance: OXAZEPAM
     Indication: Panic disorder
  3. LORAZEPAM [Suspect]
     Active Substance: LORAZEPAM
     Indication: Anxiety
     Dosage: UNK
     Dates: start: 20201214, end: 20210201
  4. LORAZEPAM [Suspect]
     Active Substance: LORAZEPAM
     Indication: Panic disorder
  5. ZYPREXA [Concomitant]
     Active Substance: OLANZAPINE

REACTIONS (14)
  - Suicide attempt [Recovering/Resolving]
  - Suicidal ideation [Recovering/Resolving]
  - Emotional disorder [Recovering/Resolving]
  - Anxiety [Recovering/Resolving]
  - Panic attack [Recovering/Resolving]
  - Dizziness [Recovering/Resolving]
  - Vomiting [Recovering/Resolving]
  - Restlessness [Recovering/Resolving]
  - Psychological trauma [Recovering/Resolving]
  - Personality disorder [Recovering/Resolving]
  - Hyperarousal [Recovering/Resolving]
  - Hyperacusis [Recovering/Resolving]
  - Fear [Recovering/Resolving]
  - Hypersomnia [Recovering/Resolving]

NARRATIVE: CASE EVENT DATE: 20201218
